FAERS Safety Report 5282364-2 (Version None)
Quarter: 2007Q1

REPORT INFORMATION
  Report Type: 
  Country: None (occurrence: None)
  Receive Date: 20070326
  Receipt Date: 20070306
  Transmission Date: 20070707
  Serious: No
  Sender: FDA-Public Use
  Company Number: E2020-01037-SPO-CH

PATIENT
  Age: 80 Year
  Sex: Male
  Weight: 75 kg

DRUGS (4)
  1. ARICEPT [Suspect]
     Indication: DEMENTIA
     Dosage: SEE IMAGE
     Route: 048
     Dates: start: 20060925, end: 20061231
  2. ARICEPT [Suspect]
     Indication: DEMENTIA
     Dosage: SEE IMAGE
     Route: 048
     Dates: start: 20070101, end: 20070126
  3. SIMVASTATIN [Suspect]
     Dosage: 20 MG, ORAL
     Route: 048
     Dates: start: 20040101, end: 20070126
  4. VITAMIN B COMPLEX (VITAMIN B-COMPLEX) [Suspect]
     Dosage: UNKNOWN, ORAL
     Route: 048
     Dates: start: 20040101, end: 20070126

REACTIONS (1)
  - ANGIOEDEMA [None]
